FAERS Safety Report 5572195-8 (Version None)
Quarter: 2007Q4

REPORT INFORMATION
  Report Type: 
  Country: None (occurrence: None)
  Receive Date: 20071221
  Receipt Date: 20071211
  Transmission Date: 20080405
  Serious: Yes (Hospitalization)
  Sender: FDA-Public Use
  Company Number: US-PFIZER INC-2007103596

PATIENT
  Sex: Female

DRUGS (5)
  1. XANAX [Suspect]
     Indication: ANXIETY
     Route: 048
  2. ALL OTHER THERAPEUTIC PRODUCTS [Suspect]
     Indication: PROPHYLAXIS
     Route: 048
     Dates: start: 20060607, end: 20060803
  3. AMBIEN [Suspect]
     Indication: ANXIETY
     Dosage: TEXT:10 MG (10 MG, 1 IN 1 D)
     Route: 048
  4. EFFEXOR [Suspect]
     Indication: DEPRESSION
     Dosage: TEXT:37.5 MG (37.5 MG, 1 IN 1 D)
     Route: 048
  5. EFFEXOR [Suspect]
     Indication: ANXIETY

REACTIONS (2)
  - FALL [None]
  - HAEMATOMA [None]
